FAERS Safety Report 9277672 (Version 1)
Quarter: 2012Q4

REPORT INFORMATION
  Report Type: Spontaneous
  Country: US (occurrence: None)
  Receive Date: 20121105
  Receipt Date: 20121105
  Transmission Date: 20130627
  Serious: Yes (Hospitalization)
  Sender: FDA-Public Use
  Company Number: ADR-2011-11321

PATIENT
  Sex: Male

DRUGS (3)
  1. LIORESAL INTRATHECAL(BACLOFEN INJECTION) 2000 MCG/ML [Suspect]
     Indication: SPASTICITY
     Dosage: mcg, daily, intrath
     Route: 037
  2. LIORESAL INTRATHECAL(BACLOFEN INJECTION) 2000 MCG/ML [Suspect]
     Indication: HEAD INJURY
     Dosage: mcg, daily, intrath
     Route: 037
  3. LIORESAL INTRATHECAL(BACLOFEN INJECTION) 2000 MCG/ML [Suspect]
     Indication: BRAIN INJURY
     Dosage: mcg, daily, intrath
     Route: 037

REACTIONS (5)
  - Vomiting [None]
  - No therapeutic response [None]
  - Sinusitis [None]
  - Haematemesis [None]
  - Urinary retention [None]
